FAERS Safety Report 19353280 (Version 2)
Quarter: 2021Q2

REPORT INFORMATION
  Report Type: Report from Study
  Country: KR (occurrence: KR)
  Receive Date: 20210601
  Receipt Date: 20210605
  Transmission Date: 20210717
  Serious: Yes (Other)
  Sender: FDA-Public Use
  Company Number: KR-AMGEN INC.-KORCT2021083709

PATIENT
  Age: 68 Year
  Sex: Female

DRUGS (5)
  1. ERIBULIN [Concomitant]
     Active Substance: ERIBULIN
     Indication: PRODUCT USED FOR UNKNOWN INDICATION
     Dosage: 2.4 UNK
     Dates: start: 20160217
  2. FENTANYL. [Concomitant]
     Active Substance: FENTANYL
     Indication: PRODUCT USED FOR UNKNOWN INDICATION
     Dosage: 100 UNK
     Dates: start: 20160217
  3. OXYCODONE/NALOXONE TEVA [Concomitant]
     Indication: PRODUCT USED FOR UNKNOWN INDICATION
     Dosage: 10 MILLIGRAM
     Dates: start: 20160217
  4. FILGRASTIM [Suspect]
     Active Substance: FILGRASTIM
     Dosage: 1 UNK
     Route: 065
     Dates: start: 20160921, end: 20160921
  5. FILGRASTIM [Suspect]
     Active Substance: FILGRASTIM
     Indication: PRODUCT USED FOR UNKNOWN INDICATION
     Dosage: 1 UNK
     Route: 065
     Dates: start: 20160316, end: 20160316

REACTIONS (1)
  - Neutropenia [Recovered/Resolved]

NARRATIVE: CASE EVENT DATE: 20160921
